FAERS Safety Report 21207592 (Version 2)
Quarter: 2022Q4

REPORT INFORMATION
  Report Type: Spontaneous
  Country: US (occurrence: US)
  Receive Date: 20220812
  Receipt Date: 20221130
  Transmission Date: 20230113
  Serious: No
  Sender: FDA-Public Use
  Company Number: US-PFIZER INC-PV202200041116

PATIENT
  Age: 38 Year
  Sex: Female

DRUGS (4)
  1. XELJANZ [Suspect]
     Active Substance: TOFACITINIB CITRATE
     Dosage: 5 MG, 2X/DAY
     Route: 048
     Dates: start: 2016
  2. IRON [Concomitant]
     Active Substance: IRON
     Dosage: UNK
  3. SYSTANE ULTRA HYDRATION [Concomitant]
     Dosage: UNK (0.3%-0)
  4. VITAMIN D3 [Concomitant]
     Active Substance: CHOLECALCIFEROL
     Dosage: UNK

REACTIONS (8)
  - Rhinorrhoea [Unknown]
  - Disease progression [Not Recovered/Not Resolved]
  - Pain [Unknown]
  - Periorbital swelling [Unknown]
  - Constipation [Unknown]
  - Abdominal pain [Unknown]
  - Hepatic pain [Unknown]
  - Product dose omission issue [Unknown]

NARRATIVE: CASE EVENT DATE: 20220701
